FAERS Safety Report 25706471 (Version 2)
Quarter: 2025Q3

REPORT INFORMATION
  Report Type: Spontaneous
  Country: US (occurrence: US)
  Receive Date: 20250820
  Receipt Date: 20250915
  Transmission Date: 20251021
  Serious: No
  Sender: AMGEN
  Company Number: US-AMGEN-USASP2025164946

PATIENT
  Sex: Female

DRUGS (9)
  1. OTEZLA [Suspect]
     Active Substance: APREMILAST
     Indication: Product used for unknown indication
     Route: 048
     Dates: start: 20230811
  2. OTEZLA [Suspect]
     Active Substance: APREMILAST
     Dosage: 30 MILLIGRAM, BID
     Route: 048
     Dates: start: 20231017
  3. Betameth dipropionate [Concomitant]
  4. CLOBETASOL [Concomitant]
     Active Substance: CLOBETASOL
  5. FLUOCINOLONE ACETONIDE [Concomitant]
     Active Substance: FLUOCINOLONE ACETONIDE
  6. LOSARTAN POTASSIUM [Concomitant]
     Active Substance: LOSARTAN POTASSIUM
  7. OSELTAMIVIR [Concomitant]
     Active Substance: OSELTAMIVIR
  8. VTAMA [Concomitant]
     Active Substance: TAPINAROF
  9. NYSTATIN [Concomitant]
     Active Substance: NYSTATIN

REACTIONS (4)
  - Rash [Not Recovered/Not Resolved]
  - Restlessness [Not Recovered/Not Resolved]
  - Discomfort [Not Recovered/Not Resolved]
  - Therapy interrupted [Not Recovered/Not Resolved]
